FAERS Safety Report 14851456 (Version 1)
Quarter: 2018Q2

REPORT INFORMATION
  Report Type: Spontaneous
  Country: FR (occurrence: FR)
  Receive Date: 20180507
  Receipt Date: 20180507
  Transmission Date: 20180711
  Serious: Yes (Other)
  Sender: FDA-Public Use
  Company Number: FR-MERCK KGAA-2047263

PATIENT
  Age: 44 Year
  Sex: Male

DRUGS (1)
  1. NOVOTHYROX [Suspect]
     Active Substance: LEVOTHYROXINE SODIUM
     Indication: HYPOTHYROIDISM
     Dates: start: 2017

REACTIONS (14)
  - Weight increased [None]
  - Myalgia [None]
  - Asthenia [None]
  - Depression [None]
  - Mood swings [None]
  - Muscle fatigue [None]
  - Anger [None]
  - Ligament rupture [None]
  - Pain in extremity [None]
  - Fatigue [None]
  - Sleep apnoea syndrome [None]
  - Blood cholesterol decreased [None]
  - Dyspnoea [None]
  - Social avoidant behaviour [None]

NARRATIVE: CASE EVENT DATE: 2017
